FAERS Safety Report 8814249 (Version 1)
Quarter: 2012Q4

REPORT INFORMATION
  Report Type: 
  Country: US (occurrence: US)
  Receive Date: 20120928
  Receipt Date: 20120928
  Transmission Date: 20130627
  Serious: Yes (Hospitalization)
  Sender: FDA-Public Use
  Company Number: US-BAYER-2012-100696

PATIENT
  Age: 52 Year
  Sex: Female

DRUGS (20)
  1. YASMIN [Suspect]
  2. LEXAPRO [Concomitant]
  3. ADDERALL [Concomitant]
  4. LIPITOR [Concomitant]
  5. LEVOTHYROXINE [Concomitant]
  6. OXYCONTIN [Concomitant]
  7. OXYCODONE [Concomitant]
  8. DECADRON [Concomitant]
     Indication: MULTIPLE MYELOMA
     Dosage: weekly
     Route: 048
  9. DECADRON [Concomitant]
     Indication: MULTIPLE MYELOMA
     Route: 048
  10. MULTIVITAMINS [Concomitant]
  11. VINCRISTINE [Concomitant]
     Indication: MULTIPLE MYELOMA
  12. ADRIAMYCIN [Concomitant]
     Indication: MULTIPLE MYELOMA
  13. ZOVIRAX [Concomitant]
     Indication: STOMATITIS
     Route: 042
  14. ZOVIRAX [Concomitant]
     Indication: DYSPHAGIA
  15. GELCAIR [Concomitant]
     Indication: STOMATITIS
  16. GELCAIR [Concomitant]
     Indication: DYSPHAGIA
  17. DIFLUCAN [Concomitant]
     Indication: STOMATITIS
  18. DIFLUCAN [Concomitant]
     Indication: DYSPHAGIA
  19. LEVAQUIN [Concomitant]
  20. VANCOMYCIN [Concomitant]

REACTIONS (2)
  - Deep vein thrombosis [None]
  - Pulmonary embolism [None]
